FAERS Safety Report 12574381 (Version 1)
Quarter: 2016Q3

REPORT INFORMATION
  Report Type: Report from Study
  Country: CO (occurrence: CO)
  Receive Date: 20160720
  Receipt Date: 20160720
  Transmission Date: 20161109
  Serious: Yes (Other)
  Sender: FDA-Public Use
  Company Number: CO-JNJFOC-20160611806

PATIENT
  Age: 48 Year
  Sex: Female
  Weight: 70 kg

DRUGS (1)
  1. SIMPONI [Suspect]
     Active Substance: GOLIMUMAB
     Indication: ANKYLOSING SPONDYLITIS
     Route: 058
     Dates: start: 20140805

REACTIONS (5)
  - Arthralgia [Recovering/Resolving]
  - Cough [Unknown]
  - Pneumococcal infection [Unknown]
  - Gait disturbance [Recovering/Resolving]
  - Toxoplasmosis [Unknown]

NARRATIVE: CASE EVENT DATE: 201605
